FAERS Safety Report 14316803 (Version 5)
Quarter: 2018Q1

REPORT INFORMATION
  Report Type: Spontaneous
  Country: US (occurrence: US)
  Receive Date: 20171222
  Receipt Date: 20180227
  Transmission Date: 20180509
  Serious: Yes (Other)
  Sender: FDA-Public Use
  Company Number: US-PFIZER INC-2017547295

PATIENT
  Age: 65 Year
  Sex: Female

DRUGS (2)
  1. PREMARIN [Suspect]
     Active Substance: ESTROGENS, CONJUGATED
     Indication: BLOOD OESTROGEN DECREASED
     Dosage: UNK, 2X/WEEK
     Route: 067
  2. PREMARIN [Suspect]
     Active Substance: ESTROGENS, CONJUGATED
     Dosage: 0.5 TWICE A WEEK
     Route: 067
     Dates: start: 201704, end: 201711

REACTIONS (5)
  - Breast tenderness [Unknown]
  - Breast disorder [Unknown]
  - Mastitis [Unknown]
  - Pain [Recovered/Resolved]
  - Breast enlargement [Unknown]

NARRATIVE: CASE EVENT DATE: 201711
